FAERS Safety Report 12869201 (Version 1)
Quarter: 2016Q4

REPORT INFORMATION
  Report Type: Spontaneous
  Country: US (occurrence: US)
  Receive Date: 20161021
  Receipt Date: 20161021
  Transmission Date: 20170207
  Serious: Yes (Hospitalization)
  Sender: FDA-Public Use
  Company Number: US-VIIV HEALTHCARE LIMITED-US2016154252

PATIENT
  Age: 37 Year
  Sex: Male

DRUGS (6)
  1. TRIUMEQ [Suspect]
     Active Substance: ABACAVIR SULFATE\DOLUTEGRAVIR SODIUM\LAMIVUDINE
     Indication: HIV INFECTION
     Dosage: 1 DF, QD
     Route: 048
     Dates: start: 2012, end: 201609
  2. LEXAPRO [Concomitant]
     Active Substance: ESCITALOPRAM OXALATE
  3. LATUDA [Concomitant]
     Active Substance: LURASIDONE HYDROCHLORIDE
  4. KLONOPIN [Concomitant]
     Active Substance: CLONAZEPAM
  5. GABAPENTIN. [Concomitant]
     Active Substance: GABAPENTIN
  6. RESTORIL [Concomitant]
     Active Substance: TEMAZEPAM

REACTIONS (11)
  - Asthenia [Recovering/Resolving]
  - Nausea [Recovering/Resolving]
  - Therapeutic response decreased [Unknown]
  - Sluggishness [Recovered/Resolved]
  - Feeling abnormal [Unknown]
  - Gastrointestinal inflammation [Recovered/Resolved]
  - Renal disorder [Unknown]
  - Weight decreased [Not Recovered/Not Resolved]
  - Viral load increased [Not Recovered/Not Resolved]
  - Decreased appetite [Recovering/Resolving]
  - Night sweats [Not Recovered/Not Resolved]

NARRATIVE: CASE EVENT DATE: 201201
